FAERS Safety Report 15690941 (Version 3)
Quarter: 2018Q4

REPORT INFORMATION
  Report Type: Spontaneous
  Country: US (occurrence: US)
  Receive Date: 20181205
  Receipt Date: 20181221
  Transmission Date: 20190205
  Serious: Yes (Other)
  Sender: FDA-Public Use
  Company Number: US-SA-2018SA328467

PATIENT

DRUGS (14)
  1. TAXOTERE [Suspect]
     Active Substance: DOCETAXEL
     Dosage: 200 MG
     Route: 042
     Dates: start: 20050203, end: 20050203
  2. TAXOTERE [Suspect]
     Active Substance: DOCETAXEL
     Dosage: 200 MG
     Route: 042
     Dates: start: 20050407, end: 20050407
  3. TAXOTERE [Suspect]
     Active Substance: DOCETAXEL
     Dosage: 200 MG
     Route: 042
     Dates: start: 20041028, end: 20041028
  4. NEULASTA [Concomitant]
     Active Substance: PEGFILGRASTIM
  5. TAXOTERE [Suspect]
     Active Substance: DOCETAXEL
     Dosage: 200 MG
     Route: 042
     Dates: start: 20041223, end: 20041223
  6. TAXOTERE [Suspect]
     Active Substance: DOCETAXEL
     Dosage: 200 MG
     Route: 042
     Dates: start: 20050224, end: 20050224
  7. TAXOTERE [Suspect]
     Active Substance: DOCETAXEL
     Dosage: 200 MG, QCY
     Route: 042
     Dates: start: 20041028, end: 20041028
  8. TAXOTERE [Suspect]
     Active Substance: DOCETAXEL
     Dosage: 200 MG
     Route: 042
     Dates: start: 20041028, end: 20041028
  9. CYTOXAN [Concomitant]
     Active Substance: CYCLOPHOSPHAMIDE
     Dosage: 1200 MG
  10. DECADRON [DEXAMETHASONE ACETATE] [Concomitant]
  11. TAXOTERE [Suspect]
     Active Substance: DOCETAXEL
     Dosage: UNK
     Route: 042
     Dates: start: 20050407, end: 20050407
  12. TAXOTERE [Suspect]
     Active Substance: DOCETAXEL
     Dosage: 200 MG
     Route: 042
     Dates: start: 20041201, end: 20041201
  13. TAXOTERE [Suspect]
     Active Substance: DOCETAXEL
     Dosage: 200 MG
     Route: 042
     Dates: start: 20050113, end: 20050113
  14. TAXOTERE [Suspect]
     Active Substance: DOCETAXEL
     Dosage: 200 MG
     Route: 042
     Dates: start: 20050317, end: 20050317

REACTIONS (1)
  - Alopecia [Not Recovered/Not Resolved]
